FAERS Safety Report 20735109 (Version 1)
Quarter: 2022Q2

REPORT INFORMATION
  Report Type: Spontaneous
  Country: US (occurrence: US)
  Receive Date: 20220421
  Receipt Date: 20220421
  Transmission Date: 20220721
  Serious: Yes (Disabling)
  Sender: FDA-Public Use
  Company Number: US-PFIZER INC-202200334195

PATIENT
  Age: 49 Year
  Sex: Male

DRUGS (1)
  1. INLYTA [Suspect]
     Active Substance: AXITINIB
     Dosage: TAKE 1 TABLET EVERY 12 HOURS (TWICE DAILY)
     Dates: start: 20220210

REACTIONS (2)
  - Bone lesion [Unknown]
  - Fatigue [Unknown]
